FAERS Safety Report 11374211 (Version 1)
Quarter: 2015Q3

REPORT INFORMATION
  Report Type: Spontaneous
  Country: US (occurrence: US)
  Receive Date: 20150812
  Receipt Date: 20150812
  Transmission Date: 20151125
  Serious: No
  Sender: FDA-Public Use
  Company Number: US-TEVA-582444USA

PATIENT
  Sex: Female

DRUGS (2)
  1. GABITRIL [Suspect]
     Active Substance: TIAGABINE HYDROCHLORIDE
     Indication: PRODUCT USED FOR UNKNOWN INDICATION
     Route: 065
  2. GABITRIL [Suspect]
     Active Substance: TIAGABINE HYDROCHLORIDE

REACTIONS (1)
  - Mood altered [Unknown]
